FAERS Safety Report 18949173 (Version 4)
Quarter: 2022Q3

REPORT INFORMATION
  Report Type: Report from Study
  Country: DE (occurrence: DE)
  Receive Date: 20210227
  Receipt Date: 20220901
  Transmission Date: 20221027
  Serious: Yes (Hospitalization, Other)
  Sender: FDA-Public Use
  Company Number: DE-TAKEDA-DE202027054

PATIENT
  Age: 3 Year
  Sex: Male
  Weight: 8 kg

DRUGS (8)
  1. TEDUGLUTIDE [Suspect]
     Active Substance: TEDUGLUTIDE
     Indication: Short-bowel syndrome
     Dosage: 1.25 MILLIGRAM, QD
     Route: 058
     Dates: start: 20180702, end: 20210213
  2. TEDUGLUTIDE [Suspect]
     Active Substance: TEDUGLUTIDE
     Indication: Short-bowel syndrome
     Dosage: 1.25 MILLIGRAM, QD
     Route: 058
     Dates: start: 20180702, end: 20210213
  3. TEDUGLUTIDE [Suspect]
     Active Substance: TEDUGLUTIDE
     Indication: Short-bowel syndrome
     Dosage: 1.25 MILLIGRAM, QD
     Route: 058
     Dates: start: 20180702, end: 20210213
  4. TEDUGLUTIDE [Suspect]
     Active Substance: TEDUGLUTIDE
     Indication: Short-bowel syndrome
     Dosage: 1.25 MILLIGRAM, QD
     Route: 058
     Dates: start: 20180702, end: 20210213
  5. TEDUGLUTIDE [Suspect]
     Active Substance: TEDUGLUTIDE
     Dosage: 0.16 MILLILITER, QOD
     Route: 058
  6. TEDUGLUTIDE [Suspect]
     Active Substance: TEDUGLUTIDE
     Dosage: 0.16 MILLILITER, QOD
     Route: 058
  7. TEDUGLUTIDE [Suspect]
     Active Substance: TEDUGLUTIDE
     Dosage: 0.16 MILLILITER, QOD
     Route: 058
  8. TEDUGLUTIDE [Suspect]
     Active Substance: TEDUGLUTIDE
     Dosage: 0.16 MILLILITER, QOD
     Route: 058

REACTIONS (6)
  - Haematemesis [Recovered/Resolved]
  - Device related infection [Recovered/Resolved]
  - Gastrostomy [Recovered/Resolved]
  - Pneumonia aspiration [Recovered/Resolved]
  - Liver disorder [Recovered/Resolved]
  - Pyrexia [Recovered/Resolved]

NARRATIVE: CASE EVENT DATE: 20200813
